FAERS Safety Report 17327840 (Version 2)
Quarter: 2020Q2

REPORT INFORMATION
  Report Type: Spontaneous
  Country: US (occurrence: US)
  Receive Date: 20200127
  Receipt Date: 20200514
  Transmission Date: 20200713
  Serious: Yes (Disabling, Other)
  Sender: FDA-Public Use
  Company Number: US-AMGEN-USASP2020011141

PATIENT
  Age: 80 Year
  Sex: Female
  Weight: 35.7 kg

DRUGS (1)
  1. PROLIA [Suspect]
     Active Substance: DENOSUMAB
     Indication: OSTEOPOROSIS POSTMENOPAUSAL
     Dosage: 60 MILLIGRAM PER MILLILITRE
     Route: 065
     Dates: start: 2014

REACTIONS (1)
  - Synovial cyst [Not Recovered/Not Resolved]
